FAERS Safety Report 10006257 (Version 3)
Quarter: 2014Q2

REPORT INFORMATION
  Report Type: Report from Study
  Country: US (occurrence: US)
  Receive Date: 20140313
  Receipt Date: 20140424
  Transmission Date: 20141212
  Serious: Yes (Congenital Anomaly)
  Sender: FDA-Public Use
  Company Number: US-NOVOPROD-402090

PATIENT
  Sex: 0

DRUGS (4)
  1. LIRAGLUTIDE FLEXPEN [Suspect]
     Indication: OBESITY
     Dosage: 0.6 MG, QD
     Route: 064
     Dates: start: 20110812, end: 20131225
  2. LIRAGLUTIDE FLEXPEN [Suspect]
     Indication: OBESITY
     Dosage: 0.6 MG, QD
     Route: 064
     Dates: start: 20110812, end: 20131225
  3. LIRAGLUTIDE FLEXPEN [Suspect]
     Dosage: UNK
     Route: 058
     Dates: end: 20131225
  4. LIRAGLUTIDE FLEXPEN [Suspect]
     Dosage: UNK
     Route: 058
     Dates: end: 20131225

REACTIONS (1)
  - Trisomy 21 [Not Recovered/Not Resolved]
